FAERS Safety Report 7906667-5 (Version None)
Quarter: 2011Q4

REPORT INFORMATION
  Report Type: 
  Country: None (occurrence: None)
  Receive Date: 20111109
  Receipt Date: 20111109
  Transmission Date: 20120403
  Serious: Yes (Life-Threatening, Disabling, Other)
  Sender: FDA-Public Use
  Company Number: None

PATIENT
  Age: 74 Year
  Sex: Female
  Weight: 62.5964 kg

DRUGS (1)
  1. TARCEVA [Suspect]
     Indication: LUNG NEOPLASM MALIGNANT
     Dosage: 1 PILL DAILY DAILY MOUTH
     Route: 048
     Dates: start: 20070701, end: 20070801

REACTIONS (3)
  - RASH MACULAR [None]
  - NEUROPATHY PERIPHERAL [None]
  - PAIN [None]
